FAERS Safety Report 8229642-2 (Version None)
Quarter: 2012Q1

REPORT INFORMATION
  Report Type: 
  Country: None (occurrence: None)
  Receive Date: 20120322
  Receipt Date: 20120316
  Transmission Date: 20120608
  Serious: Yes (Other)
  Sender: FDA-Public Use
  Company Number: PHEH2012US006045

PATIENT
  Sex: Male
  Weight: 74.376 kg

DRUGS (10)
  1. GILENYA [Suspect]
     Dosage: 0.5 MG, DAILY
  2. NASONEX [Concomitant]
     Dosage: UNK UKN, UNK
  3. SEREVENT [Concomitant]
  4. BACLOFEN [Concomitant]
     Dosage: 10 MG, UNK
  5. CLARITIN [Concomitant]
     Dosage: 10 MG, UNK
  6. FAMPRIDINE [Concomitant]
     Dosage: 10 MG, UNK
  7. TRIAMCINOLONE [Concomitant]
     Dosage: UNK UKN, UNK
  8. NEURONTIN [Concomitant]
     Dosage: 100 MG, UNK
  9. ATROVENT [Concomitant]
     Dosage: UNK UKN, UNK
  10. ALBUTEROL [Concomitant]
     Dosage: UNK UKN, UNK

REACTIONS (2)
  - PAPILLOEDEMA [None]
  - VISION BLURRED [None]
